FAERS Safety Report 5280648-5 (Version None)
Quarter: 2007Q1

REPORT INFORMATION
  Report Type: 
  Country: None (occurrence: None)
  Receive Date: 20070322
  Receipt Date: 20070307
  Transmission Date: 20070707
  Serious: Yes (Life-Threatening)
  Sender: FDA-Public Use
  Company Number: 2007EU000318

PATIENT
  Age: 11 Week
  Sex: Female
  Weight: 5.2 kg

DRUGS (1)
  1. PROGRAF [Suspect]
     Indication: LIVER TRANSPLANT
     Dosage: 0.5 MG, D, IV NOS
     Route: 042
     Dates: start: 20061125, end: 20061125

REACTIONS (6)
  - BLOOD PRESSURE INCREASED [None]
  - FEEDING DISORDER OF INFANCY OR EARLY CHILDHOOD [None]
  - IRRITABILITY [None]
  - NYSTAGMUS [None]
  - RESTLESSNESS [None]
  - TACHYCARDIA [None]
